FAERS Safety Report 21324261 (Version 3)
Quarter: 2022Q4

REPORT INFORMATION
  Report Type: Spontaneous
  Country: JP (occurrence: JP)
  Receive Date: 20220912
  Receipt Date: 20221005
  Transmission Date: 20230113
  Serious: Yes (Hospitalization, Other)
  Sender: FDA-Public Use
  Company Number: JP-BRISTOL-MYERS SQUIBB COMPANY-2022-102676

PATIENT
  Age: 82 Year
  Sex: Male
  Weight: 50 kg

DRUGS (4)
  1. ELIQUIS [Suspect]
     Active Substance: APIXABAN
     Indication: Cerebrovascular accident prophylaxis
     Route: 048
     Dates: start: 20151024, end: 20220830
  2. ELIQUIS [Suspect]
     Active Substance: APIXABAN
  3. PAXLOVID [Suspect]
     Active Substance: NIRMATRELVIR\RITONAVIR
     Indication: Product used for unknown indication
     Dosage: NIRMATRELVIR 300MG/RITONAVIR 100MG, BID
     Route: 065
     Dates: start: 20220810, end: 20220814
  4. PAXLOVID [Suspect]
     Active Substance: NIRMATRELVIR\RITONAVIR

REACTIONS (7)
  - Atrial fibrillation [Not Recovered/Not Resolved]
  - Interstitial lung disease [Not Recovered/Not Resolved]
  - Ileus [Recovered/Resolved]
  - Anaemia [Recovering/Resolving]
  - Hypertension [Not Recovered/Not Resolved]
  - COVID-19 [Unknown]
  - Melaena [Recovered/Resolved]

NARRATIVE: CASE EVENT DATE: 20180129
